FAERS Safety Report 9008042 (Version 2)
Quarter: 2013Q1

REPORT INFORMATION
  Report Type: Spontaneous
  Country: US (occurrence: US)
  Receive Date: 20130111
  Receipt Date: 20130131
  Transmission Date: 20140127
  Serious: No
  Sender: FDA-Public Use
  Company Number: US-PFIZER INC-2013009166

PATIENT
  Age: 68 Year
  Sex: Female
  Weight: 79.82 kg

DRUGS (1)
  1. OXYCODONE HYDROCHLORIDE [Suspect]
     Dosage: UNK

REACTIONS (1)
  - Drug hypersensitivity [Unknown]
